FAERS Safety Report 20751070 (Version 14)
Quarter: 2023Q1

REPORT INFORMATION
  Report Type: Other
  Country: GB (occurrence: None)
  Receive Date: 20220426
  Receipt Date: 20230330
  Transmission Date: 20230417
  Serious: Yes (Hospitalization, Other)
  Sender: FDA-Public Use
  Company Number: GB-ROCHE-3081254

PATIENT
  Age: 68 Year
  Sex: Male
  Weight: 84.2 kg

DRUGS (29)
  1. ATEZOLIZUMAB [Suspect]
     Active Substance: ATEZOLIZUMAB
     Indication: Hepatocellular carcinoma
     Route: 041
     Dates: start: 20220302
  2. BEVACIZUMAB [Suspect]
     Active Substance: BEVACIZUMAB
     Indication: Hepatocellular carcinoma
     Route: 065
     Dates: start: 20220302
  3. PREGABALIN [Concomitant]
     Active Substance: PREGABALIN
     Dates: start: 20220701, end: 20220819
  4. PREGABALIN [Concomitant]
     Active Substance: PREGABALIN
     Dates: start: 20220706, end: 20220920
  5. SIMVASTATIN [Concomitant]
     Active Substance: SIMVASTATIN
  6. PROPRANOLOL HYDROCHLORIDE [Concomitant]
     Active Substance: PROPRANOLOL HYDROCHLORIDE
  7. COCODAMOL [Concomitant]
     Active Substance: ACETAMINOPHEN\CODEINE PHOSPHATE
  8. ACETAMINOPHEN [Concomitant]
     Active Substance: ACETAMINOPHEN
  9. FINASTERIDE [Concomitant]
     Active Substance: FINASTERIDE
  10. HYDROCORTISONE [Concomitant]
     Active Substance: HYDROCORTISONE
     Dates: start: 20220615
  11. HYDROCORTISONE [Concomitant]
     Active Substance: HYDROCORTISONE
     Dates: start: 20221104
  12. HYDROCORTISONE [Concomitant]
     Active Substance: HYDROCORTISONE
     Dates: start: 20221104
  13. CARVEDILOL [Concomitant]
     Active Substance: CARVEDILOL
     Dates: start: 20220615
  14. TERLIPRESSIN [Concomitant]
     Active Substance: TERLIPRESSIN
     Dates: end: 20220627
  15. THROMBIN [Concomitant]
     Active Substance: THROMBIN
     Dates: start: 20220626, end: 20220626
  16. GLICLAZIDE [Concomitant]
     Active Substance: GLICLAZIDE
     Dates: start: 20220703
  17. LACTULOSE [Concomitant]
     Active Substance: LACTULOSE
     Dosage: 15 ML
     Dates: start: 20220703
  18. LANSOPRAZOLE [Concomitant]
     Active Substance: LANSOPRAZOLE
     Dosage: 30MG
     Dates: start: 20220708
  19. SPIRONOLACTONE [Concomitant]
     Active Substance: SPIRONOLACTONE
     Indication: Product used for unknown indication
     Dates: start: 20220611
  20. ALBUTEROL [Concomitant]
     Active Substance: ALBUTEROL
     Indication: Product used for unknown indication
     Dates: start: 20220711
  21. POLYETHYLENE GLYCOLS [Concomitant]
     Active Substance: POLYETHYLENE GLYCOLS
     Indication: Constipation
     Dates: start: 20220825
  22. CALCIUM CARBONATE\CHOLECALCIFEROL [Concomitant]
     Active Substance: CALCIUM CARBONATE\CHOLECALCIFEROL
     Dates: start: 20220707
  23. ANUSOL (UNITED KINGDOM) [Concomitant]
     Dates: start: 20220707
  24. CALVIVE 1000 [Concomitant]
     Dates: start: 20220707, end: 20220710
  25. MAGNESIUM CITRATE [Concomitant]
     Active Substance: MAGNESIUM CITRATE
     Dates: start: 20220707
  26. RENAPRO [Concomitant]
     Dates: start: 20220707
  27. MIDAZOLAM [Concomitant]
     Active Substance: MIDAZOLAM
     Dates: start: 20220708, end: 20220708
  28. FENTANYL [Concomitant]
     Active Substance: FENTANYL
     Dates: start: 20220708, end: 20220708
  29. AMOXICILLIN [Concomitant]
     Active Substance: AMOXICILLIN
     Dates: start: 20230130, end: 20230206

REACTIONS (18)
  - Insomnia [Not Recovered/Not Resolved]
  - Sciatica [Not Recovered/Not Resolved]
  - Urinary retention [Recovered/Resolved]
  - Fatigue [Not Recovered/Not Resolved]
  - Diarrhoea [Recovered/Resolved]
  - Decreased appetite [Recovered/Resolved]
  - Cortisol decreased [Recovered/Resolved]
  - Hyponatraemia [Recovered/Resolved]
  - Haematemesis [Recovered/Resolved]
  - Varices oesophageal [Not Recovered/Not Resolved]
  - Blood calcium decreased [Recovered/Resolved]
  - Rectal haemorrhage [Recovered/Resolved]
  - Haemorrhoids [Not Recovered/Not Resolved]
  - Blood magnesium decreased [Recovered/Resolved]
  - Gastric varices [Not Recovered/Not Resolved]
  - Melaena [Recovered/Resolved]
  - Contusion [Recovered/Resolved]
  - Muscle spasms [Recovered/Resolved with Sequelae]

NARRATIVE: CASE EVENT DATE: 20220305
